FAERS Safety Report 18558685 (Version 2)
Quarter: 2021Q1

REPORT INFORMATION
  Report Type: Other
  Country: IT (occurrence: IT)
  Receive Date: 20201130
  Receipt Date: 20210104
  Transmission Date: 20210419
  Serious: Yes (Death, Hospitalization)
  Sender: FDA-Public Use
  Company Number: IT-ROCHE-2719877

PATIENT
  Age: 79 Year
  Sex: Male

DRUGS (4)
  1. RITUXIMAB. [Suspect]
     Active Substance: RITUXIMAB
     Indication: NON-HODGKIN^S LYMPHOMA
     Route: 065
     Dates: start: 202001
  2. BENDAMUSTINE [Suspect]
     Active Substance: BENDAMUSTINE
     Indication: NON-HODGKIN^S LYMPHOMA
     Route: 065
     Dates: start: 202001
  3. CEFTRIAXONE. [Suspect]
     Active Substance: CEFTRIAXONE
     Indication: COVID-19
     Route: 042
  4. SULFAMETHOXAZOLE/TRIMETHOPRIM [Suspect]
     Active Substance: SULFAMETHOXAZOLE\TRIMETHOPRIM
     Indication: COVID-19
     Dosage: TRIMETHOPRIME 160MG PLUS SULFAMETHOXAZOLE 800MG
     Route: 048
     Dates: start: 202003, end: 202003

REACTIONS (4)
  - Off label use [Fatal]
  - Respiratory failure [Fatal]
  - COVID-19 [Fatal]
  - Intentional product use issue [Fatal]

NARRATIVE: CASE EVENT DATE: 2020
